FAERS Safety Report 18526652 (Version 3)
Quarter: 2020Q4

REPORT INFORMATION
  Report Type: Report from Study
  Country: US (occurrence: IN)
  Receive Date: 20201120
  Receipt Date: 20201211
  Transmission Date: 20210114
  Serious: Yes (Hospitalization)
  Sender: FDA-Public Use
  Company Number: US-JNJFOC-20201132325

PATIENT
  Age: 11 Year
  Sex: Female

DRUGS (21)
  1. TURMERIC [CURCUMA LONGA RHIZOME] [Concomitant]
     Active Substance: HERBALS\TURMERIC
  2. ONDANSETRON [Concomitant]
     Active Substance: ONDANSETRON
  3. IBUPROFEN. [Concomitant]
     Active Substance: IBUPROFEN
  4. INFLIXIMAB, RECOMBINANT [Suspect]
     Active Substance: INFLIXIMAB
     Indication: INFLAMMATORY BOWEL DISEASE
     Route: 042
     Dates: start: 201612, end: 20190613
  5. BACITRACIN. [Concomitant]
     Active Substance: BACITRACIN
  6. BUPIVACAINE. [Concomitant]
     Active Substance: BUPIVACAINE
  7. ACETAMINOPHEN. [Concomitant]
     Active Substance: ACETAMINOPHEN
  8. NYSTATIN. [Concomitant]
     Active Substance: NYSTATIN
  9. LIDOCAINE. [Concomitant]
     Active Substance: LIDOCAINE
  10. CLONIDINE. [Concomitant]
     Active Substance: CLONIDINE
  11. LACTATED RINGERS SOLUTION [Concomitant]
     Active Substance: CALCIUM CHLORIDE\POTASSIUM CHLORIDE\SODIUM CHLORIDE\SODIUM LACTATE
  12. MIDAZOLAM. [Concomitant]
     Active Substance: MIDAZOLAM
  13. MORPHINE [Concomitant]
     Active Substance: MORPHINE
  14. FENTANYL. [Concomitant]
     Active Substance: FENTANYL
  15. VITAMIN A [RETINOL] [Concomitant]
     Active Substance: RETINOL
  16. CHOLECALCIFEROL [Concomitant]
     Active Substance: CHOLECALCIFEROL
  17. TRIAMCINOLONE ACETONIDE. [Concomitant]
     Active Substance: TRIAMCINOLONE ACETONIDE
  18. LOPERAMIDE [Concomitant]
     Active Substance: LOPERAMIDE
  19. DEXAMETHASONE. [Concomitant]
     Active Substance: DEXAMETHASONE
  20. ZOSYN [Concomitant]
     Active Substance: PIPERACILLIN SODIUM\TAZOBACTAM SODIUM
  21. PROPOFOL. [Concomitant]
     Active Substance: PROPOFOL

REACTIONS (1)
  - Food poisoning [Recovered/Resolved]

NARRATIVE: CASE EVENT DATE: 20200304
